FAERS Safety Report 11200383 (Version 1)
Quarter: 2015Q2

REPORT INFORMATION
  Report Type: Report from Study
  Country: PT (occurrence: PT)
  Receive Date: 20150618
  Receipt Date: 20150618
  Transmission Date: 20150821
  Serious: Yes (Other)
  Sender: FDA-Public Use
  Company Number: PHHY2015PT004022

PATIENT
  Age: 23 Year
  Sex: Male

DRUGS (2)
  1. GILENYA [Suspect]
     Active Substance: FINGOLIMOD HYDROCHLORIDE
     Indication: MULTIPLE SCLEROSIS
     Dosage: 0.5 MG, UNK
     Route: 048
     Dates: start: 20141028
  2. GILENYA [Suspect]
     Active Substance: FINGOLIMOD HYDROCHLORIDE
     Indication: RELAPSING-REMITTING MULTIPLE SCLEROSIS

REACTIONS (12)
  - Vision blurred [Unknown]
  - Somnolence [Unknown]
  - Decreased appetite [Not Recovered/Not Resolved]
  - Visual acuity reduced [Recovering/Resolving]
  - Mydriasis [Unknown]
  - Eye pain [Unknown]
  - Headache [Not Recovered/Not Resolved]
  - Vomiting [Recovering/Resolving]
  - Fatigue [Unknown]
  - Feeling hot [Not Recovered/Not Resolved]
  - Nausea [Recovering/Resolving]
  - Central nervous system lesion [Recovering/Resolving]

NARRATIVE: CASE EVENT DATE: 20150110
